FAERS Safety Report 9121808 (Version 1)
Quarter: 2012Q4

REPORT INFORMATION
  Report Type: Spontaneous
  Country: US (occurrence: None)
  Receive Date: 20121026
  Receipt Date: 20121026
  Transmission Date: 20130627
  Serious: No
  Sender: FDA-Public Use
  Company Number: 2012US-004354

PATIENT
  Age: 53 Year
  Sex: Female
  Weight: 69.8 kg

DRUGS (2)
  1. OMONTYS (PEGINESATIDE) SOLUTION FOR INJECTION [Suspect]
     Indication: NEPHROGENIC ANAEMIA
     Dosage: 2 mg,  Q 4 weeks,  Intravenous
     Route: 042
     Dates: start: 20120828, end: 20120828
  2. EPOGEN (EPOETIN ALFA) [Concomitant]

REACTIONS (3)
  - Retching [None]
  - Nausea [None]
  - Headache [None]
